FAERS Safety Report 6010105-X (Version None)
Quarter: 2008Q4

REPORT INFORMATION
  Report Type: 
  Country: None (occurrence: None)
  Receive Date: 20081217
  Receipt Date: 20081217
  Transmission Date: 20090506
  Serious: Yes (Life-Threatening)
  Sender: FDA-Public Use
  Company Number: None

PATIENT
  Sex: Female

DRUGS (1)
  1. METOPROLOL SUCCINATE [Suspect]
     Indication: HYPERKINETIC HEART SYNDROME
     Dosage: 12.5MG TID PO
     Route: 048
     Dates: start: 20081208, end: 20081201

REACTIONS (3)
  - ANGINA PECTORIS [None]
  - TACHYCARDIA [None]
  - THERAPEUTIC RESPONSE UNEXPECTED WITH DRUG SUBSTITUTION [None]
